FAERS Safety Report 5734977-9 (Version None)
Quarter: 2008Q2

REPORT INFORMATION
  Report Type: 
  Country: None (occurrence: None)
  Receive Date: 20080508
  Receipt Date: 20080508
  Transmission Date: 20081010
  Serious: No
  Sender: FDA-Public Use
  Company Number: None

PATIENT
  Age: 17 Year
  Sex: Female
  Weight: 61.2356 kg

DRUGS (1)
  1. CREST PRO HEALTH MOUTHWASH [Suspect]
     Indication: GINGIVITIS
     Dosage: ONE TABLESPOON DAILY PO
     Route: 048
     Dates: start: 20080330, end: 20080420

REACTIONS (1)
  - UNEVALUABLE EVENT [None]
